FAERS Safety Report 6334090-6 (Version None)
Quarter: 2009Q3

REPORT INFORMATION
  Report Type: 
  Country: None (occurrence: None)
  Receive Date: 20090829
  Receipt Date: 20090723
  Transmission Date: 20100115
  Serious: No
  Sender: FDA-Public Use
  Company Number: US-ABBOTT-09P-163-0587661-00

PATIENT
  Sex: Female
  Weight: 73.548 kg

DRUGS (10)
  1. SIMCOR [Suspect]
     Indication: BLOOD CHOLESTEROL INCREASED
     Dosage: 500MG/20MG
     Dates: start: 20090713
  2. GELNIQUE [Concomitant]
     Indication: DRUG USE FOR UNKNOWN INDICATION
  3. FISH OIL [Concomitant]
     Indication: DRUG USE FOR UNKNOWN INDICATION
  4. FOLIC ACID [Concomitant]
     Indication: DRUG USE FOR UNKNOWN INDICATION
  5. VITAMIN B-12 [Concomitant]
     Indication: DRUG USE FOR UNKNOWN INDICATION
  6. GARLIC [Concomitant]
     Indication: DRUG USE FOR UNKNOWN INDICATION
  7. CINNAMON [Concomitant]
     Indication: DRUG USE FOR UNKNOWN INDICATION
  8. JUICE PLUS [Concomitant]
     Indication: DRUG USE FOR UNKNOWN INDICATION
  9. COLON CLEANS [Concomitant]
     Indication: DRUG USE FOR UNKNOWN INDICATION
  10. PHYTOPROLEIF [Concomitant]
     Indication: DRUG USE FOR UNKNOWN INDICATION

REACTIONS (1)
  - FLUSHING [None]
